FAERS Safety Report 11560272 (Version 1)
Quarter: 2015Q3

REPORT INFORMATION
  Report Type: Spontaneous
  Country: CH (occurrence: CH)
  Receive Date: 20150928
  Receipt Date: 20150928
  Transmission Date: 20151125
  Serious: Yes (Hospitalization)
  Sender: FDA-Public Use
  Company Number: CH-009507513-1509CHE012035

PATIENT
  Age: 51 Year
  Sex: Female
  Weight: 68 kg

DRUGS (18)
  1. FLUOXETINE [Concomitant]
     Active Substance: FLUOXETINE\FLUOXETINE HYDROCHLORIDE
     Indication: DEPRESSION
     Dosage: 20 MG, QD
     Route: 048
  2. SALAZOPYRINE [Concomitant]
     Active Substance: SULFASALAZINE
     Indication: ANKYLOSING SPONDYLITIS
     Dosage: 0.5 MG, BID
     Route: 048
     Dates: end: 20150821
  3. ALOXI [Suspect]
     Active Substance: PALONOSETRON HYDROCHLORIDE
     Indication: NAUSEA
     Dosage: 0.25 MG, ONCE
     Route: 041
     Dates: start: 20150824, end: 20150824
  4. PRIMPERAN [Suspect]
     Active Substance: METOCLOPRAMIDE HYDROCHLORIDE
     Indication: NAUSEA
     Dosage: AS NECESSARY
     Route: 048
  5. METHOTREXATE [Concomitant]
     Active Substance: METHOTREXATE
     Indication: ANKYLOSING SPONDYLITIS
     Dosage: 10 MG, QW
     Route: 048
     Dates: end: 20150813
  6. MEFENACID [Concomitant]
     Active Substance: MEFENAMIC ACID
     Indication: PROCEDURAL PAIN
     Dosage: 500 MG, TID
     Route: 048
     Dates: start: 20150819, end: 20150821
  7. FEXOFENADINE [Concomitant]
     Active Substance: FEXOFENADINE\FEXOFENADINE HYDROCHLORIDE
     Dosage: 80 MG, QD
     Route: 048
     Dates: end: 20150823
  8. PANTOPRAZOLE [Concomitant]
     Active Substance: PANTOPRAZOLE SODIUM
     Dosage: 40 MG, QD
     Route: 048
  9. EMEND [Suspect]
     Active Substance: APREPITANT
     Indication: NAUSEA
     Dosage: 125 MG, ONCE
     Route: 048
     Dates: start: 20150824, end: 20150824
  10. EMEND [Suspect]
     Active Substance: APREPITANT
     Dosage: 80 MG, QD
     Route: 048
     Dates: start: 20150825, end: 20150826
  11. DOCETAXEL. [Suspect]
     Active Substance: DOCETAXEL
     Indication: BREAST CANCER FEMALE
     Dosage: 75 MG/M2 (=124.8 MG), ONCE
     Route: 040
     Dates: start: 20150824, end: 20150824
  12. DOXORUBICIN [Suspect]
     Active Substance: DOXORUBICIN
     Indication: BREAST CANCER FEMALE
     Dosage: 50 MG/M2 (=83.2 MG), ONCE
     Route: 041
     Dates: start: 20150824, end: 20150824
  13. MEPHAMESON [Suspect]
     Active Substance: DEXAMETHASONE
     Indication: NAUSEA
     Dosage: 12 MG, ONCE
     Route: 041
     Dates: start: 20150824, end: 20150824
  14. MEPHAMESON [Suspect]
     Active Substance: DEXAMETHASONE
     Dosage: 4 MG, QD
     Route: 041
     Dates: start: 20150825, end: 20150826
  15. NEULASTA [Suspect]
     Active Substance: PEGFILGRASTIM
     Indication: SECONDARY IMMUNODEFICIENCY
     Dosage: 6 MG, UNK
     Route: 058
     Dates: start: 20150825, end: 20150825
  16. SIMVASTATIN. [Concomitant]
     Active Substance: SIMVASTATIN
     Indication: DYSLIPIDAEMIA
     Dosage: 40 MG, QD
     Route: 048
     Dates: start: 201508
  17. ENDOXAN [Suspect]
     Active Substance: CYCLOPHOSPHAMIDE
     Indication: BREAST CANCER FEMALE
     Dosage: 500 MG/M2 (=832 MG), ONCE
     Route: 041
     Dates: start: 20150824, end: 20150824
  18. LYRICA [Concomitant]
     Active Substance: PREGABALIN
     Indication: PAIN MANAGEMENT
     Dosage: 50 MG, BID
     Route: 048

REACTIONS (1)
  - Pancreatitis acute [Recovered/Resolved]

NARRATIVE: CASE EVENT DATE: 20150827
